FAERS Safety Report 20298747 (Version 1)
Quarter: 2022Q1

REPORT INFORMATION
  Report Type: Spontaneous
  Country: FR (occurrence: FR)
  Receive Date: 20220105
  Receipt Date: 20220105
  Transmission Date: 20220424
  Serious: Yes (Congenital Anomaly, Other)
  Sender: FDA-Public Use
  Company Number: FR-ABBVIE-22K-056-4220316-00

PATIENT
  Sex: Male
  Weight: 3.45 kg

DRUGS (2)
  1. VALPROATE SODIUM [Suspect]
     Active Substance: VALPROATE SODIUM
     Indication: Maternal exposure timing unspecified
     Route: 064
  2. FOLIC ACID [Concomitant]
     Active Substance: FOLIC ACID
     Indication: Maternal exposure timing unspecified

REACTIONS (21)
  - Arteriovenous malformation [Unknown]
  - Speech disorder [Recovering/Resolving]
  - Language disorder [Recovering/Resolving]
  - Loss of personal independence in daily activities [Recovering/Resolving]
  - Attention deficit hyperactivity disorder [Unknown]
  - Behaviour disorder [Unknown]
  - Congenital foot malformation [Not Recovered/Not Resolved]
  - Dysmorphism [Recovered/Resolved]
  - Astigmatism [Unknown]
  - Encopresis [Unknown]
  - Fatigue [Unknown]
  - Congenital foot malformation [Unknown]
  - Emotional disorder [Unknown]
  - Anxiety [Unknown]
  - Feeling abnormal [Unknown]
  - Affect lability [Unknown]
  - Anger [Unknown]
  - Thinking abnormal [Unknown]
  - Aggression [Unknown]
  - Learning disorder [Unknown]
  - Foetal exposure during pregnancy [Unknown]

NARRATIVE: CASE EVENT DATE: 20070105
